FAERS Safety Report 9469563 (Version 1)
Quarter: 2013Q3

REPORT INFORMATION
  Report Type: Spontaneous
  Country: US (occurrence: US)
  Receive Date: 20130822
  Receipt Date: 20130822
  Transmission Date: 20140515
  Serious: Yes (Other)
  Sender: FDA-Public Use
  Company Number: US-BIOGENIDEC-2013BI074654

PATIENT
  Age: 63 Year
  Sex: Female
  Weight: 63 kg

DRUGS (5)
  1. TECFIDERA [Suspect]
     Indication: PRODUCT USED FOR UNKNOWN INDICATION
     Route: 048
     Dates: start: 201306
  2. TECFIDERA [Suspect]
     Indication: PRODUCT USED FOR UNKNOWN INDICATION
     Route: 048
  3. SYNTHROID [Concomitant]
  4. ASPIRIN [Concomitant]
  5. AMLODIPINE [Concomitant]

REACTIONS (2)
  - Lymphoma [Unknown]
  - Thyroidectomy [Unknown]
